FAERS Safety Report 7246375-X (Version None)
Quarter: 2011Q1

REPORT INFORMATION
  Report Type: 
  Country: None (occurrence: None)
  Receive Date: 20110126
  Receipt Date: 20110118
  Transmission Date: 20110831
  Serious: Yes (Death, Hospitalization)
  Sender: FDA-Public Use
  Company Number: FR-BAXTER-2011BH001561

PATIENT
  Age: 72 Year
  Sex: Female

DRUGS (2)
  1. CYCLOPHOSPHAMIDE [Suspect]
     Indication: WALDENSTROM'S MACROGLOBULINAEMIA
     Route: 048
     Dates: start: 20050101, end: 20101227
  2. BACTRIM [Suspect]
     Indication: PRODUCT USED FOR UNKNOWN INDICATION
     Route: 065
     Dates: start: 20101227, end: 20101231

REACTIONS (2)
  - PANCYTOPENIA [None]
  - ACUTE RESPIRATORY DISTRESS SYNDROME [None]
